FAERS Safety Report 11458423 (Version 1)
Quarter: 2015Q3

REPORT INFORMATION
  Report Type: Report from Study
  Country: US (occurrence: US)
  Receive Date: 20150904
  Receipt Date: 20150904
  Transmission Date: 20151125
  Serious: Yes (Hospitalization)
  Sender: FDA-Public Use
  Company Number: US-JNJFOC-20150902044

PATIENT
  Age: 81 Year
  Sex: Female

DRUGS (14)
  1. TOBRADEX [Concomitant]
     Active Substance: DEXAMETHASONE\TOBRAMYCIN
  2. ULTRAM [Concomitant]
     Active Substance: TRAMADOL HYDROCHLORIDE
  3. TYLENOL [Concomitant]
     Active Substance: ACETAMINOPHEN
  4. IMODIUM [Concomitant]
     Active Substance: LOPERAMIDE HYDROCHLORIDE
  5. IMBRUVICA [Suspect]
     Active Substance: IBRUTINIB
     Indication: CHRONIC LYMPHOCYTIC LEUKAEMIA
     Route: 048
     Dates: start: 20141113
  6. LEVOTHYROXINE. [Concomitant]
     Active Substance: LEVOTHYROXINE
  7. NEXIUM [Concomitant]
     Active Substance: ESOMEPRAZOLE MAGNESIUM
  8. RESTASIS [Concomitant]
     Active Substance: CYCLOSPORINE
     Route: 031
  9. CALCIUM [Concomitant]
     Active Substance: CALCIUM
  10. LIPITOR [Concomitant]
     Active Substance: ATORVASTATIN CALCIUM
  11. LASIX [Concomitant]
     Active Substance: FUROSEMIDE
  12. PROLIA [Concomitant]
     Active Substance: DENOSUMAB
  13. CLARITIN [Concomitant]
     Active Substance: LORATADINE
  14. CITRACAL [Concomitant]
     Active Substance: CALCIUM CITRATE

REACTIONS (3)
  - Impaired healing [Not Recovered/Not Resolved]
  - Cardiac failure [Recovered/Resolved]
  - Basal cell carcinoma [Unknown]

NARRATIVE: CASE EVENT DATE: 201506
